FAERS Safety Report 6627659-2 (Version None)
Quarter: 2010Q1

REPORT INFORMATION
  Report Type: 
  Country: None (occurrence: None)
  Receive Date: 20100308
  Receipt Date: 20100218
  Transmission Date: 20100710
  Serious: Yes (Other)
  Sender: FDA-Public Use
  Company Number: 2010030016

PATIENT
  Age: 66 Year
  Sex: Female

DRUGS (10)
  1. DEMADEX [Suspect]
     Indication: CARDIAC FAILURE
     Dosage: 30 MG (10 MG, 3 IN 1 D), ORAL
     Route: 048
  2. DEMADEX [Suspect]
     Indication: HYPERTENSION
     Dosage: 30 MG (10 MG, 3 IN 1 D), ORAL
     Route: 048
  3. LIPITOR [Suspect]
     Indication: BLOOD CHOLESTEROL INCREASED
     Dosage: 40 MG (40 MG, 1 IN 1 D), ORAL; 80 MG (80 MG, 1 IN 1 D), ORAL
     Route: 048
     Dates: start: 20090101, end: 20090101
  4. LIPITOR [Suspect]
     Indication: BLOOD CHOLESTEROL INCREASED
     Dosage: 40 MG (40 MG, 1 IN 1 D), ORAL; 80 MG (80 MG, 1 IN 1 D), ORAL
     Route: 048
     Dates: start: 20090101, end: 20091229
  5. KLOR-CON [Concomitant]
  6. PLAVIX [Concomitant]
  7. METOPROLOL (METOPROLOL) [Concomitant]
  8. NITROGLYCERIN [Concomitant]
  9. LISINOPRIL [Concomitant]
  10. TRICOR [Concomitant]

REACTIONS (4)
  - GAIT DISTURBANCE [None]
  - MUSCLE SPASMS [None]
  - MYALGIA [None]
  - PAIN IN EXTREMITY [None]
